FAERS Safety Report 11190753 (Version 1)
Quarter: 2015Q2

REPORT INFORMATION
  Report Type: Spontaneous
  Country: US (occurrence: US)
  Receive Date: 20150615
  Receipt Date: 20150615
  Transmission Date: 20150821
  Serious: No
  Sender: FDA-Public Use
  Company Number: US-BAYER-2015-331076

PATIENT
  Age: 67 Year
  Sex: Male
  Weight: 132 kg

DRUGS (14)
  1. BETASERON [Suspect]
     Active Substance: INTERFERON BETA-1B
  2. FISH OIL [Concomitant]
     Active Substance: FISH OIL
  3. LORAZEPAM. [Concomitant]
     Active Substance: LORAZEPAM
     Dosage: 7.5 MG, BID
  4. VITAMIN D [Concomitant]
     Active Substance: CHOLECALCIFEROL
  5. NIACIN. [Concomitant]
     Active Substance: NIACIN
  6. BACLOFEN. [Concomitant]
     Active Substance: BACLOFEN
     Dosage: 20 MG, UNK
  7. HYDROCHLOROTHIAZIDE. [Concomitant]
     Active Substance: HYDROCHLOROTHIAZIDE
     Dosage: 25 MG, UNK
  8. POLYETHYLENE GLYCOL [Concomitant]
     Active Substance: POLYETHYLENE GLYCOLS
     Dosage: UNK
  9. COPAXONE [Concomitant]
     Active Substance: GLATIRAMER ACETATE
     Dosage: 20 MG, UNK
  10. ALLOPURINOL. [Concomitant]
     Active Substance: ALLOPURINOL
     Dosage: 300 MG, UNK
     Dates: start: 201405
  11. METOPROLOL [Concomitant]
     Active Substance: METOPROLOL
     Dosage: 25 MG, UNK
  12. LANSOPRAZOLE. [Concomitant]
     Active Substance: LANSOPRAZOLE
     Dosage: 30 MG, UNK
  13. HYOSCYAMINE SULFATE. [Concomitant]
     Active Substance: HYOSCYAMINE SULFATE
     Dosage: 0.125 MG, UNK
  14. CITALOPRAM [Concomitant]
     Active Substance: CITALOPRAM HYDROBROMIDE
     Dosage: 400 MG, UNK

REACTIONS (1)
  - Influenza like illness [None]
